FAERS Safety Report 8777041 (Version 2)
Quarter: 2019Q4

REPORT INFORMATION
  Report Type: Spontaneous
  Country: US (occurrence: US)
  Receive Date: 20120911
  Receipt Date: 20191219
  Transmission Date: 20200122
  Serious: Yes (Other)
  Sender: FDA-Public Use
  Company Number: US-UCBSA-064709

PATIENT

DRUGS (1)
  1. CIMZIA [Suspect]
     Active Substance: CERTOLIZUMAB PEGOL
     Dosage: INDUCTION DOSE
     Dates: start: 201208

REACTIONS (2)
  - Rash [Unknown]
  - Angioedema [Unknown]

NARRATIVE: CASE EVENT DATE: 201208
